FAERS Safety Report 8863025 (Version 2)
Quarter: 2012Q4

REPORT INFORMATION
  Report Type: 
  Country: IT (occurrence: IT)
  Receive Date: 20121026
  Receipt Date: 20121120
  Transmission Date: 20130627
  Serious: Yes (Hospitalization)
  Sender: FDA-Public Use
  Company Number: IT-SANOFI-AVENTIS-2012SA076578

PATIENT
  Age: 89 Year
  Sex: Female

DRUGS (8)
  1. LASIX [Suspect]
     Indication: CHRONIC RENAL FAILURE
     Route: 048
     Dates: start: 20100101, end: 20120928
  2. OLMESARTAN MEDOXOMIL [Suspect]
     Indication: HYPERTENSION ARTERIAL
     Route: 048
     Dates: start: 20100101, end: 20120928
  3. SIMVASTATIN [Concomitant]
  4. DOXAZOSIN MESILATE [Concomitant]
  5. TIKLID [Concomitant]
  6. PANTORC [Concomitant]
  7. STILNOX [Concomitant]
  8. ARANESP [Concomitant]
     Dosage: prefilled syringes

REACTIONS (5)
  - Hyperkalaemia [Recovering/Resolving]
  - Mental retardation [Recovering/Resolving]
  - Loss of consciousness [Recovering/Resolving]
  - Renal failure acute [Recovering/Resolving]
  - Hyponatraemia [Recovering/Resolving]
